FAERS Safety Report 4908999-1 (Version None)
Quarter: 2006Q1

REPORT INFORMATION
  Report Type: 
  Country: None (occurrence: None)
  Receive Date: 20060209
  Receipt Date: 20060119
  Transmission Date: 20060701
  Serious: Yes (Hospitalization, Other)
  Sender: FDA-Public Use
  Company Number: US_0508120831

PATIENT
  Age: 46 Year
  Sex: Male
  Weight: 78 kg

DRUGS (12)
  1. OLANZAPINE [Suspect]
     Indication: BIPOLAR DISORDER
     Dosage: SEE IMAGE
     Dates: start: 20030513, end: 20030101
  2. OLANZAPINE [Suspect]
     Indication: BIPOLAR DISORDER
     Dosage: SEE IMAGE
     Dates: start: 20030909, end: 20031027
  3. OLANZAPINE [Suspect]
     Indication: BIPOLAR DISORDER
     Dosage: SEE IMAGE
     Dates: start: 20030909, end: 20031027
  4. OLANZAPINE [Suspect]
     Indication: BIPOLAR DISORDER
     Dosage: SEE IMAGE
     Dates: start: 20031027
  5. CYMBALTA [Suspect]
     Indication: DEPRESSION
     Dosage: 30 MG
     Dates: start: 20050707
  6. LITHIUM CARBONATE [Concomitant]
  7. LISINOPRIL [Concomitant]
  8. TRAZODONE HCL [Concomitant]
  9. CARISOPRODOL (CARISOLPRODOL) [Concomitant]
  10. SEROQUEL [Concomitant]
  11. DEPAKOTE [Concomitant]
  12. AMBIEN [Concomitant]

REACTIONS (20)
  - ABDOMINAL PAIN [None]
  - ALCOHOLIC PANCREATITIS [None]
  - ALCOHOLISM [None]
  - BLOOD CHOLESTEROL INCREASED [None]
  - CONDITION AGGRAVATED [None]
  - DEPRESSED MOOD [None]
  - DIABETES MELLITUS [None]
  - GASTROINTESTINAL HAEMORRHAGE [None]
  - GLUCOSE TOLERANCE IMPAIRED [None]
  - HEPATIC CYST [None]
  - HEPATITIS ALCOHOLIC [None]
  - HYPERHIDROSIS [None]
  - HYPERTRIGLYCERIDAEMIA [None]
  - ILEUS [None]
  - MANIA [None]
  - NAUSEA [None]
  - PRESCRIBED OVERDOSE [None]
  - SEXUAL DYSFUNCTION [None]
  - VOMITING [None]
  - WHITE BLOOD CELL COUNT INCREASED [None]
